FAERS Safety Report 18822343 (Version 1)
Quarter: 2021Q1

REPORT INFORMATION
  Report Type: Spontaneous
  Country: US (occurrence: US)
  Receive Date: 20210202
  Receipt Date: 20210202
  Transmission Date: 20210419
  Serious: No
  Sender: FDA-Public Use
  Company Number: US-MYLANLABS-2021M1002843

PATIENT
  Age: 60 Year
  Sex: Female
  Weight: 58 kg

DRUGS (2)
  1. DEXAMETHASONE SODIUM PHOSPHATE INJECTION USP 4 MG/ML [Suspect]
     Active Substance: DEXAMETHASONE
     Indication: TENDON INJURY
  2. DEXAMETHASONE SODIUM PHOSPHATE INJECTION USP 4 MG/ML [Suspect]
     Active Substance: DEXAMETHASONE
     Indication: LIGAMENT SPRAIN
     Dosage: 1ML SDV 25PK
     Route: 062
     Dates: start: 20210113

REACTIONS (1)
  - Off label use [Not Recovered/Not Resolved]

NARRATIVE: CASE EVENT DATE: 20210113
